FAERS Safety Report 7918418-9 (Version None)
Quarter: 2011Q4

REPORT INFORMATION
  Report Type: 
  Country: None (occurrence: None)
  Receive Date: 20111114
  Receipt Date: 20111104
  Transmission Date: 20120403
  Serious: Yes (Death, Hospitalization)
  Sender: FDA-Public Use
  Company Number: 1102365

PATIENT
  Age: 45 Year
  Sex: Male
  Weight: 29.4838 kg

DRUGS (1)
  1. DOCETAXEL [Suspect]
     Indication: LUNG CARCINOMA CELL TYPE UNSPECIFIED STAGE IV
     Dosage: 130 MG MILLIGRAM(S), 21 DAY, INTRAVENOUS (NOT OTHERWISE SPECIFIED)
     Route: 042
     Dates: start: 20110602, end: 20110602

REACTIONS (2)
  - FEBRILE NEUTROPENIA [None]
  - ANAEMIA [None]
